FAERS Safety Report 16694252 (Version 2)
Quarter: 2019Q3

REPORT INFORMATION
  Report Type: Spontaneous
  Country: JP (occurrence: JP)
  Receive Date: 20190812
  Receipt Date: 20190910
  Transmission Date: 20191004
  Serious: Yes (Hospitalization)
  Sender: FDA-Public Use
  Company Number: PHJP2019JP010493

PATIENT
  Age: 73 Year
  Sex: Female

DRUGS (1)
  1. EXELON PATCH [Suspect]
     Active Substance: RIVASTIGMINE
     Indication: DEMENTIA ALZHEIMER^S TYPE
     Dosage: 6.9 MG, QD (PATCH 7.5 CM2, 13.5 MG RIVASTIGMINE BASE)
     Route: 062

REACTIONS (1)
  - Pneumonia aspiration [Recovering/Resolving]
